FAERS Safety Report 6010471-5 (Version None)
Quarter: 2008Q4

REPORT INFORMATION
  Report Type: 
  Country: None (occurrence: None)
  Receive Date: 20081216
  Receipt Date: 20081203
  Transmission Date: 20090506
  Serious: Yes (Death)
  Sender: FDA-Public Use
  Company Number: DEP_00187_2008

PATIENT

DRUGS (1)
  1. METFORMIN HCL [Suspect]
     Indication: DRUG USE FOR UNKNOWN INDICATION
     Dosage: (DF)

REACTIONS (4)
  - ANION GAP INCREASED [None]
  - CARDIAC ARREST [None]
  - METABOLIC ACIDOSIS [None]
  - RENAL FAILURE ACUTE [None]
